FAERS Safety Report 24658260 (Version 2)
Quarter: 2024Q4

REPORT INFORMATION
  Report Type: Spontaneous
  Country: US (occurrence: US)
  Receive Date: 20241125
  Receipt Date: 20241125
  Transmission Date: 20250114
  Serious: Yes (Hospitalization)
  Sender: ROCHE
  Company Number: US-ROCHE-10000137629

PATIENT
  Age: 31 Year
  Sex: Female

DRUGS (2)
  1. RITUXAN [Suspect]
     Active Substance: RITUXIMAB
     Indication: Chronic graft versus host disease
     Route: 042
     Dates: start: 202005
  2. TACROLIMUS [Suspect]
     Active Substance: TACROLIMUS
     Indication: Chronic graft versus host disease
     Route: 065
     Dates: end: 20210303

REACTIONS (4)
  - Septic shock [Unknown]
  - Disseminated intravascular coagulation [Unknown]
  - Purpura fulminans [Unknown]
  - Gangrene [Unknown]
